FAERS Safety Report 24219069 (Version 7)
Quarter: 2025Q3

REPORT INFORMATION
  Report Type: Report from Study
  Country: US (occurrence: US)
  Receive Date: 20240816
  Receipt Date: 20250810
  Transmission Date: 20251020
  Serious: No
  Sender: ALEXION PHARMACEUTICALS
  Company Number: US-AstraZeneca-CH-00682457A

PATIENT
  Age: 65 Year
  Sex: Female

DRUGS (4)
  1. STRENSIQ [Suspect]
     Active Substance: ASFOTASE ALFA
     Indication: Hypophosphatasia
     Route: 065
  2. STRENSIQ [Suspect]
     Active Substance: ASFOTASE ALFA
     Route: 065
  3. STRENSIQ [Suspect]
     Active Substance: ASFOTASE ALFA
     Dosage: 18 MILLIGRAM, TIW
     Dates: start: 20240714
  4. STRENSIQ [Suspect]
     Active Substance: ASFOTASE ALFA
     Dosage: 164 MILLIGRAM, TIW
     Dates: start: 20240715

REACTIONS (9)
  - Needle issue [Recovered/Resolved]
  - Animal scratch [Unknown]
  - Skin laceration [Unknown]
  - Sensitivity to weather change [Unknown]
  - Injection site bruising [Not Recovered/Not Resolved]
  - Injection site erythema [Not Recovered/Not Resolved]
  - Injection site swelling [Recovered/Resolved]
  - Injection site pain [Not Recovered/Not Resolved]
  - Injection site discolouration [Not Recovered/Not Resolved]

NARRATIVE: CASE EVENT DATE: 20240714
